FAERS Safety Report 4973210-2 (Version None)
Quarter: 2006Q2

REPORT INFORMATION
  Report Type: 
  Country: None (occurrence: None)
  Receive Date: 20060410
  Receipt Date: 20060328
  Transmission Date: 20061013
  Serious: Yes (Other)
  Sender: FDA-Public Use
  Company Number: 2006043429

PATIENT
  Sex: Male

DRUGS (2)
  1. VIAGRA [Suspect]
     Indication: ILL-DEFINED DISORDER
     Dosage: (100 MG,)
  2. LEVITRA [Concomitant]

REACTIONS (4)
  - CARDIAC PACEMAKER INSERTION [None]
  - DIABETES MELLITUS [None]
  - DRUG EFFECT DECREASED [None]
  - HYPERTENSION [None]
